FAERS Safety Report 8355656-8 (Version None)
Quarter: 2012Q2

REPORT INFORMATION
  Report Type: 
  Country: None (occurrence: None)
  Receive Date: 20120514
  Receipt Date: 20120502
  Transmission Date: 20120825
  Serious: Yes (Hospitalization)
  Sender: FDA-Public Use
  Company Number: US-BIOGENIDEC-2012BI013813

PATIENT
  Age: 54 Year
  Sex: Female

DRUGS (2)
  1. RITALIN [Concomitant]
  2. AVONEX [Suspect]
     Indication: MULTIPLE SCLEROSIS
     Route: 030
     Dates: start: 20120201, end: 20120501

REACTIONS (3)
  - HAEMORRHAGIC STROKE [None]
  - HYPERTENSION [None]
  - CEREBRAL HAEMORRHAGE [None]
